FAERS Safety Report 5611325-6 (Version None)
Quarter: 2008Q1

REPORT INFORMATION
  Report Type: 
  Country: None (occurrence: None)
  Receive Date: 20080201
  Receipt Date: 20080126
  Transmission Date: 20080703
  Serious: Yes (Other)
  Sender: FDA-Public Use
  Company Number: US-PFIZER INC-2007101040

PATIENT
  Sex: Male
  Weight: 127 kg

DRUGS (8)
  1. GEODON [Suspect]
     Indication: BIPOLAR DISORDER
     Route: 048
     Dates: start: 20050601, end: 20080112
  2. SEROQUEL [Concomitant]
     Dosage: DAILY DOSE:25MG
  3. WELLBUTRIN XL [Concomitant]
     Dosage: DAILY DOSE:150MG
  4. NEFAZODONE HCL [Concomitant]
  5. OXYGEN [Concomitant]
     Indication: SLEEP APNOEA SYNDROME
  6. NADOLOL [Concomitant]
  7. ASPIRIN [Concomitant]
  8. PENTOXIFYLLINE [Concomitant]

REACTIONS (4)
  - BREAST PAIN [None]
  - DIVERTICULITIS [None]
  - GYNAECOMASTIA [None]
  - WEIGHT INCREASED [None]
